FAERS Safety Report 7179175-X (Version None)
Quarter: 2010Q4

REPORT INFORMATION
  Report Type: 
  Country: None (occurrence: None)
  Receive Date: 20101221
  Receipt Date: 20101214
  Transmission Date: 20110411
  Serious: Yes (Other)
  Sender: FDA-Public Use
  Company Number: US-SANOFI-AVENTIS-2010SA058734

PATIENT
  Age: 63 Year
  Sex: Male

DRUGS (8)
  1. MULTAQ [Suspect]
     Indication: ATRIAL FIBRILLATION
     Route: 048
     Dates: start: 20100927
  2. METOPROLOL [Concomitant]
     Route: 048
     Dates: start: 20090101, end: 20100901
  3. METOPROLOL [Concomitant]
     Route: 048
     Dates: start: 20100901
  4. GEMFIBROZIL [Concomitant]
  5. PRAVASTATIN [Concomitant]
  6. PROZAC [Concomitant]
  7. VALIUM [Concomitant]
  8. TYLENOL (CAPLET) [Concomitant]

REACTIONS (5)
  - ABDOMINAL DISTENSION [None]
  - ATRIAL FIBRILLATION [None]
  - GAIT DISTURBANCE [None]
  - HYPERTENSION [None]
  - JOINT SWELLING [None]
